FAERS Safety Report 9233794 (Version 2)
Quarter: 2013Q2

REPORT INFORMATION
  Report Type: Spontaneous
  Country: US (occurrence: None)
  Receive Date: 20121031
  Receipt Date: 20130107
  Transmission Date: 20140414
  Serious: Yes (Other)
  Sender: FDA-Public Use
  Company Number: PHEH2012US014873

PATIENT
  Age: 49 Year
  Sex: Female
  Weight: 81.2 kg

DRUGS (14)
  1. GILENYA [Suspect]
     Indication: RELAPSING-REMITTING MULTIPLE SCLEROSIS
     Route: 048
  2. GABAPENTIN (GABAPENTIN) [Concomitant]
  3. DIAZEPAM (DIAZEPAM) [Concomitant]
  4. BACLOFEN (BACLOFEN) [Concomitant]
  5. AMANTADINE (AMANTADINE) [Concomitant]
  6. GLYCOPYPROLATE (GLYCOPYRONIUM BROMIDE) [Concomitant]
  7. VITAMIN D3 (COLECALCIFEROL) [Concomitant]
  8. ZEGERID (OMEPRAZOLE, SODIUM BICARBONATE) [Concomitant]
  9. TEMAZEPAM (TENAZEPAM) [Concomitant]
  10. PREMPRO (ESTROGENS CONJUGATED, MEDROXYPROGESTERONE ACETATE) [Concomitant]
  11. VITAMIN B12 (CYANOCOBALAMIN) [Concomitant]
  12. LOVASTATIN (LOVASTATIN) [Concomitant]
  13. CITALOPRAM (CITALOPRAM) [Concomitant]
  14. ALEVE (NAPROXEN SODIUM) [Concomitant]

REACTIONS (3)
  - Fatigue [None]
  - Palpitations [None]
  - White blood cell count decreased [None]
